FAERS Safety Report 8346056-5 (Version None)
Quarter: 2012Q2

REPORT INFORMATION
  Report Type: 
  Country: None (occurrence: None)
  Receive Date: 20120509
  Receipt Date: 20120504
  Transmission Date: 20120825
  Serious: No
  Sender: FDA-Public Use
  Company Number: US-PFIZER INC-2012110319

PATIENT
  Sex: Female
  Weight: 56 kg

DRUGS (4)
  1. LEVOTHYROXINE [Concomitant]
     Indication: HYPOTHYROIDISM
     Dosage: 88 UG, UNK
  2. FLECTOR [Suspect]
     Indication: PAIN
     Dosage: UNK
     Route: 061
     Dates: start: 20120503, end: 20120504
  3. SIMVASTATIN [Concomitant]
     Indication: BLOOD CHOLESTEROL INCREASED
     Dosage: 40 MG, UNK
  4. OMEPRAZOLE [Concomitant]
     Indication: GASTROOESOPHAGEAL REFLUX DISEASE
     Dosage: 20 MG, UNK

REACTIONS (4)
  - DIZZINESS [None]
  - STICKY SKIN [None]
  - HYPOAESTHESIA [None]
  - PAIN [None]
